FAERS Safety Report 9176796 (Version 1)
Quarter: 2013Q1

REPORT INFORMATION
  Report Type: Spontaneous
  Country: BR (occurrence: BR)
  Receive Date: 20130321
  Receipt Date: 20130321
  Transmission Date: 20140127
  Serious: Yes (Other)
  Sender: FDA-Public Use
  Company Number: PHHY2013BR026826

PATIENT
  Sex: Female

DRUGS (2)
  1. DIOVAN HCT [Suspect]
     Indication: BLOOD PRESSURE
     Dosage: 1 DF(VALSARTAN 320MG AND HYDROCHLOROTIAZIDE 25MG), QD
     Route: 048
  2. DIOVAN HCT [Suspect]
     Dosage: 1 DF(VALSARTAN 320MG AND HYDROCHLOROTIAZIDE 25MG), QD
     Route: 048

REACTIONS (4)
  - Deep vein thrombosis [Recovering/Resolving]
  - Liver disorder [Recovering/Resolving]
  - Malaise [Recovering/Resolving]
  - Decreased appetite [Recovering/Resolving]
